FAERS Safety Report 8785132 (Version 1)
Quarter: 2012Q4

REPORT INFORMATION
  Report Type: Spontaneous
  Country: US (occurrence: None)
  Receive Date: 20120831
  Receipt Date: 20120831
  Transmission Date: 20130627
  Serious: Yes (Death, Hospitalization)
  Sender: FDA-Public Use
  Company Number: INT_00113_2012

PATIENT
  Age: 34 Year
  Sex: Male

DRUGS (1)
  1. CEFAZOLIN [Suspect]
     Indication: PROPHYLAXIS
     Dosage: (DF Intravenous (not otherwise specified)
     Route: 042

REACTIONS (13)
  - Tryptase increased [None]
  - Arteriosclerosis coronary artery [None]
  - Convulsion [None]
  - Respiratory arrest [None]
  - Pulmonary oedema [None]
  - Brain oedema [None]
  - Pulmonary haemorrhage [None]
  - Glomerulosclerosis [None]
  - Kidney fibrosis [None]
  - Lupus nephritis [None]
  - Anaphylactic reaction [None]
  - Silicosis [None]
  - Hepatic steatosis [None]
